FAERS Safety Report 9750518 (Version 2)
Quarter: 2014Q1

REPORT INFORMATION
  Report Type: Spontaneous
  Country: GB (occurrence: GB)
  Receive Date: 20131212
  Receipt Date: 20140110
  Transmission Date: 20141002
  Serious: Yes (Hospitalization, Other)
  Sender: FDA-Public Use
  Company Number: GB-VERTEX PHARMACEUTICALS INC-2013-011725

PATIENT
  Sex: 0

DRUGS (13)
  1. INCIVO [Suspect]
     Indication: HEPATITIS C
     Route: 048
     Dates: start: 20130927, end: 20131022
  2. PEGYLATED INTERFERON [Suspect]
     Indication: HEPATITIS C
     Route: 058
     Dates: start: 20130927, end: 20131022
  3. RIBAVIRIN [Suspect]
     Indication: HEPATITIS C
     Dosage: 600 MG, BID
     Route: 048
     Dates: start: 20130927, end: 20131022
  4. NOVORAPID [Concomitant]
     Indication: DIABETES MELLITUS
     Dosage: 14, 20, 30
  5. LANTUS [Concomitant]
     Indication: DIABETES MELLITUS
     Dosage: 66
  6. ASPIRIN [Concomitant]
     Indication: PROPHYLAXIS
  7. CO APROVEL [Concomitant]
     Dosage: 300/ 25 MG
  8. METFORMIN [Concomitant]
     Indication: DIABETES MELLITUS
  9. AMITRIPTYLINE [Concomitant]
  10. QVAR INHALER [Concomitant]
  11. ROZEX [Concomitant]
  12. CALCIUM W/ VITAMIN D [Concomitant]
  13. SALBUTAMOL [Concomitant]

REACTIONS (1)
  - Dizziness [Recovered/Resolved]
